FAERS Safety Report 10098301 (Version 2)
Quarter: 2014Q2

REPORT INFORMATION
  Report Type: Report from Study
  Country: DE (occurrence: DE)
  Receive Date: 20140423
  Receipt Date: 20140423
  Transmission Date: 20141212
  Serious: Yes (Hospitalization)
  Sender: FDA-Public Use
  Company Number: DE-ROCHE-756998

PATIENT
  Age: 59 Year
  Sex: Female
  Weight: 70 kg

DRUGS (23)
  1. MYCOPHENOLATE MOFETIL [Suspect]
     Indication: LUNG TRANSPLANT
     Dosage: LAST DOSE PRIOR TO SAE 23 JAN 2011
     Route: 048
     Dates: start: 20110121, end: 20110123
  2. MYCOPHENOLATE MOFETIL [Suspect]
     Indication: LUNG TRANSPLANT
     Route: 042
     Dates: start: 20110123
  3. MEROPENEM [Concomitant]
     Route: 065
  4. TOBRAMYCIN [Concomitant]
     Route: 065
  5. VALGANCICLOVIR [Concomitant]
     Route: 065
     Dates: start: 20110122, end: 20110123
  6. PARACETAMOL [Concomitant]
     Route: 065
     Dates: start: 20110120, end: 20110123
  7. PANTOPRAZOL [Concomitant]
     Route: 065
  8. POTASSIUM CHLORIDE [Concomitant]
     Route: 065
  9. CICLOSPORINE [Concomitant]
     Route: 065
  10. ITRACONAZOL [Concomitant]
     Route: 065
  11. COLECALCIFEROL [Concomitant]
     Route: 065
  12. FUROSEMIDE [Concomitant]
     Route: 065
  13. SPIRONOLACTONE [Concomitant]
     Route: 065
  14. OXAZEPAM [Concomitant]
     Route: 065
  15. BISOPROLOL [Concomitant]
     Route: 065
  16. RAMIPRIL [Concomitant]
     Route: 065
     Dates: start: 20110122, end: 20110122
  17. DALTEPARIN SODIUM [Concomitant]
     Route: 065
  18. METAMIZOL [Concomitant]
     Route: 065
     Dates: start: 20110122, end: 20110123
  19. METOCLOPRAMID [Concomitant]
     Route: 065
     Dates: start: 20110122, end: 20110123
  20. PREDNISOLONE [Concomitant]
     Route: 065
     Dates: start: 20110121
  21. FLUCLOXACILLIN [Concomitant]
     Route: 065
     Dates: start: 20110120
  22. PRAVASTATIN [Concomitant]
     Route: 065
     Dates: start: 20110121
  23. TORASEMIDE [Concomitant]
     Route: 065

REACTIONS (1)
  - Volvulus [Recovered/Resolved]
